FAERS Safety Report 20038350 (Version 1)
Quarter: 2021Q4

REPORT INFORMATION
  Report Type: Spontaneous
  Country: US (occurrence: US)
  Receive Date: 20211105
  Receipt Date: 20211105
  Transmission Date: 20220303
  Serious: No
  Sender: FDA-Public Use
  Company Number: US-EYEVANCE PHARMACEUTICALS-2021EYE00066

PATIENT
  Age: 47 Year
  Sex: Female
  Weight: 72.562 kg

DRUGS (4)
  1. NATACYN [Suspect]
     Active Substance: NATAMYCIN
     Indication: Eye ulcer
     Dosage: EVERY 1-2 HOURS WHILE AWAKE
     Route: 047
     Dates: start: 20210616
  2. NATACYN [Suspect]
     Active Substance: NATAMYCIN
     Indication: Eye infection fungal
  3. LAMOTRIGINE [Concomitant]
     Active Substance: LAMOTRIGINE
  4. EFFEXOR [Concomitant]
     Active Substance: VENLAFAXINE HYDROCHLORIDE

REACTIONS (7)
  - Abnormal sensation in eye [Not Recovered/Not Resolved]
  - Drug ineffective [Not Recovered/Not Resolved]
  - Product physical consistency issue [Not Recovered/Not Resolved]
  - Foreign body in eye [Not Recovered/Not Resolved]
  - Eye irritation [Not Recovered/Not Resolved]
  - Lacrimation increased [Not Recovered/Not Resolved]
  - Ocular hyperaemia [Not Recovered/Not Resolved]

NARRATIVE: CASE EVENT DATE: 20210601
